FAERS Safety Report 7009844-3 (Version None)
Quarter: 2010Q3

REPORT INFORMATION
  Report Type: 
  Country: None (occurrence: None)
  Receive Date: 20100923
  Receipt Date: 20100922
  Transmission Date: 20110219
  Serious: Yes (Hospitalization)
  Sender: FDA-Public Use
  Company Number: US-JNJFOC-20100903510

PATIENT
  Sex: Female
  Weight: 84.4 kg

DRUGS (10)
  1. GOLIMUMAB [Suspect]
     Indication: RHEUMATOID ARTHRITIS
     Route: 058
  2. GOLIMUMAB [Suspect]
     Route: 058
  3. GOLIMUMAB [Suspect]
     Route: 058
  4. NORCO [Concomitant]
     Indication: PAIN
     Route: 048
  5. FOLIC ACID [Concomitant]
     Indication: VITAMIN SUPPLEMENTATION
     Route: 048
  6. PREDNISONE [Concomitant]
     Indication: RHEUMATOID ARTHRITIS
     Route: 048
  7. TRAMADOL [Concomitant]
     Indication: PAIN MANAGEMENT
     Route: 048
  8. NEXIUM [Concomitant]
     Indication: GASTRIC ULCER
     Route: 048
  9. ESTRADIOL [Concomitant]
     Indication: MENOPAUSE
     Route: 048
  10. METHOTREXATE [Concomitant]
     Indication: RHEUMATOID ARTHRITIS
     Route: 048

REACTIONS (2)
  - GASTROENTERITIS VIRAL [None]
  - INTERVERTEBRAL DISC PROTRUSION [None]
